FAERS Safety Report 9717453 (Version 1)
Quarter: 2013Q4

REPORT INFORMATION
  Report Type: Spontaneous
  Country: US (occurrence: US)
  Receive Date: 20131127
  Receipt Date: 20131127
  Transmission Date: 20140711
  Serious: No
  Sender: FDA-Public Use
  Company Number: US-GILEAD-2009-0019766

PATIENT
  Sex: Female
  Weight: 81.65 kg

DRUGS (9)
  1. LETAIRIS [Suspect]
     Indication: PULMONARY ARTERIAL HYPERTENSION
     Route: 048
     Dates: start: 20081119
  2. OXYGEN [Concomitant]
     Route: 055
  3. COUMADIN [Concomitant]
     Route: 048
  4. ZOCOR [Concomitant]
     Route: 048
  5. TRAZODONE [Concomitant]
     Route: 048
  6. ZOLOFT [Concomitant]
     Route: 048
  7. VICODIN [Concomitant]
     Route: 048
  8. ASPIRIN [Concomitant]
  9. FISH OIL [Concomitant]
     Route: 048

REACTIONS (3)
  - Fatigue [Recovered/Resolved]
  - Nasal congestion [Recovered/Resolved]
  - Sinusitis [Recovered/Resolved]
